FAERS Safety Report 7919189-2 (Version None)
Quarter: 2011Q4

REPORT INFORMATION
  Report Type: 
  Country: None (occurrence: None)
  Receive Date: 20111117
  Receipt Date: 20111109
  Transmission Date: 20120403
  Serious: Yes (Hospitalization)
  Sender: FDA-Public Use
  Company Number: US-BIOGENIDEC-2011BI040781

PATIENT
  Age: 54 Year
  Sex: Female

DRUGS (12)
  1. ASCORBIC ACID [Concomitant]
     Route: 048
  2. CHOLECALCIFEROL [Concomitant]
     Route: 048
  3. TYSABRI [Suspect]
     Indication: MULTIPLE SCLEROSIS
     Route: 042
     Dates: start: 20111007
  4. LISINOPRIL [Concomitant]
     Route: 048
  5. NITROFURANTOIN [Concomitant]
     Route: 048
  6. AVONEX [Concomitant]
     Indication: MULTIPLE SCLEROSIS
     Route: 030
  7. BACLOFEN [Concomitant]
     Route: 048
  8. SERTRALINE HYDROCHLORIDE [Concomitant]
     Route: 048
  9. VITAMIN C AND E (CRANBERRY CONCENTRATE) [Concomitant]
     Route: 048
  10. FOLIC ACID [Concomitant]
     Route: 048
  11. TOLTERODINE TARTRATE [Concomitant]
     Route: 048
  12. PSYLLIUM [Concomitant]
     Route: 048

REACTIONS (1)
  - PROTEUS INFECTION [None]
